FAERS Safety Report 9500037 (Version 3)
Quarter: 2013Q4

REPORT INFORMATION
  Report Type: Spontaneous
  Country: US (occurrence: None)
  Receive Date: 20130107
  Receipt Date: 20131226
  Transmission Date: 20140711
  Serious: Yes (Other)
  Sender: FDA-Public Use
  Company Number: PHEH2012US022701

PATIENT
  Age: 41 Year
  Sex: Female
  Weight: 56.7 kg

DRUGS (13)
  1. GILENYA [Suspect]
     Indication: MULTIPLE SCLEROSIS
     Route: 048
     Dates: start: 20121108
  2. MAGNESIUM [Concomitant]
  3. B-12 [Concomitant]
  4. DIGESTIVE ENZYMES [Concomitant]
  5. EVENING PRIMROSE OIL [Concomitant]
  6. COQ-10 [Concomitant]
  7. ZYRTEC [Concomitant]
  8. FLAXSEED OIL [Concomitant]
  9. QUERCETIN [Concomitant]
  10. PROBIOTICS [Concomitant]
  11. VERAMYST [Concomitant]
  12. PHOSPHATIDYL SERINE [Concomitant]
  13. GINKGO [Concomitant]

REACTIONS (1)
  - Temperature intolerance [None]
